FAERS Safety Report 23284668 (Version 3)
Quarter: 2024Q1

REPORT INFORMATION
  Report Type: Report from Study
  Country: US (occurrence: US)
  Receive Date: 20231211
  Receipt Date: 20240106
  Transmission Date: 20240410
  Serious: Yes (Other)
  Sender: FDA-Public Use
  Company Number: US-ABBVIE-5527312

PATIENT
  Age: 64 Year
  Sex: Female
  Weight: 69.399 kg

DRUGS (5)
  1. RINVOQ [Suspect]
     Active Substance: UPADACITINIB
     Indication: Rheumatoid arthritis
     Route: 048
     Dates: start: 20210901, end: 2023
  2. RINVOQ [Suspect]
     Active Substance: UPADACITINIB
     Indication: Rheumatoid arthritis
     Route: 048
     Dates: start: 2023, end: 2023
  3. ROSUVASTATIN [Concomitant]
     Active Substance: ROSUVASTATIN
     Indication: Blood cholesterol
     Dates: start: 20230301
  4. LATANOPROST\TIMOLOL [Concomitant]
     Active Substance: LATANOPROST\TIMOLOL
     Indication: Glaucoma
     Dosage: FREQUENCY TEXT: DAILY IN BOTH EYES
     Dates: start: 20221101
  5. PANTOPRAZOLE [Concomitant]
     Active Substance: PANTOPRAZOLE
     Indication: Dyspepsia
     Dates: start: 20220301

REACTIONS (11)
  - Surgery [Recovered/Resolved]
  - Arthralgia [Not Recovered/Not Resolved]
  - Surgery [Unknown]
  - Medical device removal [Unknown]
  - Surgery [Recovered/Resolved]
  - Surgery [Recovered/Resolved]
  - Fall [Recovered/Resolved]
  - Wrist fracture [Recovered/Resolved]
  - Pain in extremity [Not Recovered/Not Resolved]
  - Rib fracture [Unknown]
  - Pneumothorax traumatic [Unknown]

NARRATIVE: CASE EVENT DATE: 20210701
